FAERS Safety Report 7005442-6 (Version None)
Quarter: 2010Q3

REPORT INFORMATION
  Report Type: 
  Country: None (occurrence: None)
  Receive Date: 20100921
  Receipt Date: 20100913
  Transmission Date: 20110219
  Serious: Yes (Death)
  Sender: FDA-Public Use
  Company Number: JP-ROCHE-726813

PATIENT
  Sex: Female
  Weight: 30 kg

DRUGS (11)
  1. AVASTIN [Suspect]
     Indication: RECTAL CANCER METASTATIC
     Route: 041
     Dates: start: 20100616, end: 20100811
  2. ELPLAT [Concomitant]
     Route: 041
     Dates: start: 20100616, end: 20100811
  3. FLUOROURACIL [Concomitant]
     Route: 040
     Dates: start: 20100616, end: 20100811
  4. FLUOROURACIL [Concomitant]
     Dosage: ROUTE: INTRAVENOUS DRIP, DOSAGE IS UNCERTAIN.
     Route: 040
     Dates: start: 20100616, end: 20100801
  5. LEUCOVORIN CALCIUM [Concomitant]
     Route: 041
     Dates: start: 20100616, end: 20100811
  6. AMLODIPINE BESYLATE [Concomitant]
     Route: 048
     Dates: end: 20100822
  7. CRESTOR [Concomitant]
     Route: 048
     Dates: end: 20100822
  8. LOXONIN [Concomitant]
     Route: 048
     Dates: start: 20100607, end: 20100820
  9. GRANISETRON HCL [Concomitant]
     Dosage: FREQUENCY: 1/
     Route: 042
     Dates: start: 20100616, end: 20100811
  10. DEXAMETHASONE DISODIUM PHOSPHATE [Concomitant]
     Dosage: FREQUENCY: 1/
     Route: 042
     Dates: start: 20100616, end: 20100811
  11. TATHION [Concomitant]
     Dosage: FREQUENCY: 1/
     Route: 042
     Dates: start: 20100616, end: 20100811

REACTIONS (4)
  - BLOOD PRESSURE DECREASED [None]
  - GASTROINTESTINAL PERFORATION [None]
  - ILEUS [None]
  - PERIPHERAL COLDNESS [None]
